FAERS Safety Report 9477804 (Version 1)
Quarter: 2013Q3

REPORT INFORMATION
  Report Type: Spontaneous
  Country: FI (occurrence: FI)
  Receive Date: 20130827
  Receipt Date: 20130827
  Transmission Date: 20140515
  Serious: Yes (Life-Threatening, Hospitalization)
  Sender: FDA-Public Use
  Company Number: FI-BRISTOL-MYERS SQUIBB COMPANY-19194331

PATIENT
  Age: 66 Year
  Sex: Male

DRUGS (11)
  1. BYETTA [Suspect]
     Indication: TYPE 2 DIABETES MELLITUS
     Dosage: THERPAY STARTED WITH 5MG/DAY THEN INCREASED TO 10MG/2/DAY
     Route: 058
     Dates: start: 201303
  2. SIMVASTATIN [Concomitant]
     Route: 048
  3. COVERSYL [Concomitant]
     Route: 048
  4. CARVEDILOL [Concomitant]
     Route: 048
  5. DIFORMIN [Concomitant]
     Route: 048
  6. SOMAC [Concomitant]
     Route: 048
  7. VENLAFAXINE HCL [Concomitant]
     Route: 048
  8. REMERON [Concomitant]
     Route: 048
  9. LANTUS [Concomitant]
     Route: 058
     Dates: start: 201303
  10. TEMESTA [Concomitant]
  11. TENOX [Concomitant]

REACTIONS (2)
  - Anuria [Recovered/Resolved]
  - Weight increased [Unknown]
